FAERS Safety Report 14865285 (Version 1)
Quarter: 2018Q2

REPORT INFORMATION
  Report Type: Spontaneous
  Country: US (occurrence: US)
  Receive Date: 20180508
  Receipt Date: 20180508
  Transmission Date: 20180711
  Serious: Yes (Other)
  Sender: FDA-Public Use
  Company Number: US-ALKERMES INC.-ALK-2017-005072

PATIENT
  Age: 18 Year
  Sex: Female

DRUGS (1)
  1. VIVITROL [Suspect]
     Active Substance: NALTREXONE
     Indication: DRUG DEPENDENCE
     Dosage: 380 MG, QMO

REACTIONS (10)
  - Nasal congestion [Unknown]
  - Headache [Unknown]
  - Treatment noncompliance [Recovered/Resolved]
  - Somnolence [Unknown]
  - Substance use [Not Recovered/Not Resolved]
  - Defiant behaviour [Not Recovered/Not Resolved]
  - Nausea [Unknown]
  - Chronic sinusitis [Unknown]
  - Suicidal behaviour [Unknown]
  - Inadequate housing [Unknown]
